FAERS Safety Report 12174029 (Version 2)
Quarter: 2016Q1

REPORT INFORMATION
  Report Type: Report from Study
  Country: CA (occurrence: CA)
  Receive Date: 20160314
  Receipt Date: 20160318
  Transmission Date: 20160526
  Serious: Yes (Other)
  Sender: FDA-Public Use
  Company Number: CA-ROCHE-1725132

PATIENT
  Sex: Female

DRUGS (10)
  1. ESBRIET [Suspect]
     Active Substance: PIRFENIDONE
     Indication: IDIOPATHIC PULMONARY FIBROSIS
     Route: 048
     Dates: start: 20160202
  2. ESBRIET [Suspect]
     Active Substance: PIRFENIDONE
     Dosage: UNKNOWN DOSE AND FREQUENCY
     Route: 048
     Dates: start: 2016
  3. INSULIN [Concomitant]
     Active Substance: INSULIN NOS
  4. LYRICA [Concomitant]
     Active Substance: PREGABALIN
  5. AMLODIPINE [Concomitant]
     Active Substance: AMLODIPINE BESYLATE
  6. ESBRIET [Suspect]
     Active Substance: PIRFENIDONE
     Dosage: 1602MG/DAY
     Route: 048
     Dates: start: 2016
  7. JANUVIA [Concomitant]
     Active Substance: SITAGLIPTIN PHOSPHATE
  8. METOPROLOL. [Concomitant]
     Active Substance: METOPROLOL
  9. CRESTOR [Concomitant]
     Active Substance: ROSUVASTATIN CALCIUM
  10. FUROSEMIDE. [Concomitant]
     Active Substance: FUROSEMIDE

REACTIONS (3)
  - Hepatic enzyme increased [Unknown]
  - Fatigue [Not Recovered/Not Resolved]
  - Blood glucose increased [Not Recovered/Not Resolved]
